FAERS Safety Report 5026761-9 (Version None)
Quarter: 2006Q2

REPORT INFORMATION
  Report Type: 
  Country: None (occurrence: None)
  Receive Date: 20060609
  Receipt Date: 20060606
  Transmission Date: 20061013
  Serious: Yes (Disabling)
  Sender: FDA-Public Use
  Company Number: 200610473BFR

PATIENT
  Age: 31 Year
  Sex: Female

DRUGS (1)
  1. CIPROFLOXACIN HCL [Suspect]
     Indication: PYELONEPHRITIS
     Dosage: 500 MG, BID, ORAL
     Route: 048
     Dates: start: 20060401, end: 20060501

REACTIONS (6)
  - GAIT DISTURBANCE [None]
  - INFLAMMATION [None]
  - MOBILITY DECREASED [None]
  - OEDEMA PERIPHERAL [None]
  - PAIN IN EXTREMITY [None]
  - PLANTAR FASCIITIS [None]
